FAERS Safety Report 12246269 (Version 3)
Quarter: 2017Q3

REPORT INFORMATION
  Report Type: Report from Study
  Country: US (occurrence: US)
  Receive Date: 20160407
  Receipt Date: 20170824
  Transmission Date: 20171127
  Serious: Yes (Hospitalization, Other)
  Sender: FDA-Public Use
  Company Number: US-ASTRAZENECA-2016SE31538

PATIENT
  Age: 877 Month
  Sex: Female
  Weight: 93.4 kg

DRUGS (17)
  1. DULOXETINE. [Concomitant]
     Active Substance: DULOXETINE
     Indication: BIPOLAR DISORDER
     Dosage: GENERIC, 60 MG DAILY
     Route: 048
     Dates: start: 2014
  2. VITAMIN C [Concomitant]
     Active Substance: ASCORBIC ACID
  3. ROPINIROLE. [Concomitant]
     Active Substance: ROPINIROLE
     Indication: RESTLESS LEGS SYNDROME
     Dosage: GENERIC, 1 IN THE MORNING AND 1 AT NIGHT
     Route: 048
     Dates: start: 2004
  4. ROPINIROLE. [Concomitant]
     Active Substance: ROPINIROLE
     Indication: BIPOLAR DISORDER
     Dosage: GENERIC, 1 IN THE MORNING AND 1 AT NIGHT
     Route: 048
     Dates: start: 2004
  5. OXYGEN. [Concomitant]
     Active Substance: OXYGEN
     Indication: CHRONIC OBSTRUCTIVE PULMONARY DISEASE
     Dosage: 3 LITERS
  6. ASPIRIN. [Concomitant]
     Active Substance: ASPIRIN
  7. CALCIUM WITH VITAMIN D3 [Concomitant]
     Active Substance: CALCIUM CARBONATE\CHOLECALCIFEROL
     Indication: BONE DISORDER
     Dosage: 600.0MG UNKNOWN
     Route: 048
     Dates: start: 2004
  8. SYMBICORT [Suspect]
     Active Substance: BUDESONIDE\FORMOTEROL FUMARATE DIHYDRATE
     Indication: CHRONIC OBSTRUCTIVE PULMONARY DISEASE
     Dosage: 160/ 4.5, 2 PUFFS TWICE A DAY
     Route: 055
     Dates: start: 2014, end: 20160308
  9. OCUVITE [Concomitant]
     Active Substance: VITAMINS
     Indication: MACULAR DEGENERATION
     Dosage: 1 IN THE MORNING AND 1 AT NIGHT AFTER EACH MEAL.
     Route: 048
  10. ALBUTEROL. [Concomitant]
     Active Substance: ALBUTEROL
     Dosage: RESCUE INHALER 1 PUFF AS NEEDED
     Route: 055
  11. DIVALTROESX SOD ER [Concomitant]
     Indication: BIPOLAR DISORDER
     Dosage: GENERIC, 500 MG AT NIGHT
     Route: 048
     Dates: start: 2004
  12. SYMBICORT [Suspect]
     Active Substance: BUDESONIDE\FORMOTEROL FUMARATE DIHYDRATE
     Indication: CHRONIC OBSTRUCTIVE PULMONARY DISEASE
     Dosage: 160/4.5 MCG 2 PUFFS TWICE DAILY
     Route: 055
     Dates: start: 201608
  13. AMLODIPINE [Concomitant]
     Active Substance: AMLODIPINE BESYLATE
     Indication: BLOOD PRESSURE ABNORMAL
     Dosage: 10/160MG DAILY
  14. CYMBALTA [Concomitant]
     Active Substance: DULOXETINE HYDROCHLORIDE
     Indication: BIPOLAR DISORDER
  15. TEMAZEPAM. [Concomitant]
     Active Substance: TEMAZEPAM
     Indication: BIPOLAR DISORDER
     Route: 048
  16. TEMAZEPAM. [Concomitant]
     Active Substance: TEMAZEPAM
     Indication: INSOMNIA
     Route: 048
  17. OCUVITE LUTEIL [Concomitant]
     Indication: MACULAR DEGENERATION
     Dosage: 2 TABLETS, 1 IN THE MORNING AND 1 AT NIGHT AFTER EACH MEAL
     Route: 048

REACTIONS (9)
  - Frustration tolerance decreased [Unknown]
  - Body height decreased [Unknown]
  - Cardiac failure [Unknown]
  - Pneumonia [Unknown]
  - Upper limb fracture [Unknown]
  - Dyspnoea [Not Recovered/Not Resolved]
  - Malaise [Not Recovered/Not Resolved]
  - Drug dose omission [Not Recovered/Not Resolved]
  - Chronic obstructive pulmonary disease [Unknown]

NARRATIVE: CASE EVENT DATE: 201403
